FAERS Safety Report 4995195-5 (Version None)
Quarter: 2006Q2

REPORT INFORMATION
  Report Type: 
  Country: None (occurrence: None)
  Receive Date: 20060508
  Receipt Date: 20051207
  Transmission Date: 20061013
  Serious: Yes (Hospitalization, Disabling, Other)
  Sender: FDA-Public Use
  Company Number: CA-MERCK-0512CAN00054

PATIENT
  Sex: Male
  Weight: 95 kg

DRUGS (15)
  1. VIOXX [Suspect]
     Indication: CHEST PAIN
     Route: 048
     Dates: start: 20020101, end: 20040901
  2. VIOXX [Suspect]
     Indication: DYSPEPSIA
     Route: 048
     Dates: start: 20020101, end: 20040901
  3. PHENYTOIN [Concomitant]
     Route: 065
  4. CLONAZEPAM [Concomitant]
     Indication: EPILEPSY
     Route: 065
     Dates: start: 19890101
  5. CLONAZEPAM [Concomitant]
     Indication: CONVULSION
     Route: 065
     Dates: start: 19890101
  6. AMITRIPTYLINE HYDROCHLORIDE [Concomitant]
     Indication: SLEEP DISORDER THERAPY
     Route: 065
  7. CARBAMAZEPINE [Concomitant]
     Indication: CONVULSION
     Route: 065
     Dates: start: 19990101, end: 20040101
  8. TOPIRAMATE [Concomitant]
     Route: 065
  9. MILRINONE LACTATE [Concomitant]
     Indication: CHEST PAIN
     Route: 065
     Dates: start: 20030101
  10. ACETAMINOPHEN [Concomitant]
     Indication: PAIN
     Route: 065
     Dates: start: 19900101
  11. SUMATRIPTAN SUCCINATE [Concomitant]
     Indication: HYPERSENSITIVITY
     Route: 065
     Dates: start: 20031201, end: 20031201
  12. ST JOHNS WORT [Concomitant]
     Indication: DEPRESSION
     Route: 065
     Dates: start: 20010101
  13. VENLAFAXINE HYDROCHLORIDE [Concomitant]
     Route: 065
     Dates: start: 20020101, end: 20040101
  14. WARFARIN SODIUM [Concomitant]
     Indication: HAEMORRHAGIC DISORDER
     Route: 065
  15. NITROGLYCERIN [Concomitant]
     Indication: CHEST PAIN
     Route: 065

REACTIONS (17)
  - ADVERSE EVENT [None]
  - ANXIETY [None]
  - CARDIAC DISORDER [None]
  - CEREBROVASCULAR ACCIDENT [None]
  - DIALYSIS [None]
  - DYSPNOEA [None]
  - EMOTIONAL DISTRESS [None]
  - HAEMORRHAGE [None]
  - HEART INJURY [None]
  - MYOCARDIAL INFARCTION [None]
  - OEDEMA PERIPHERAL [None]
  - PAIN [None]
  - PEPTIC ULCER [None]
  - POLYTRAUMATISM [None]
  - RENAL DISORDER [None]
  - THROMBOSIS [None]
  - TRANSIENT ISCHAEMIC ATTACK [None]
